FAERS Safety Report 4746415-3 (Version None)
Quarter: 2005Q3

REPORT INFORMATION
  Report Type: 
  Country: None (occurrence: None)
  Receive Date: 20050815
  Receipt Date: 20050729
  Transmission Date: 20060218
  Serious: Yes (Other)
  Sender: FDA-Public Use
  Company Number: GBS050818067

PATIENT
  Age: 10 Year
  Sex: Male
  Weight: 32 kg

DRUGS (1)
  1. ATOMOXETINE HYDROCHLORIDE [Suspect]
     Dosage: 58 MG

REACTIONS (3)
  - COMMUNICATION DISORDER [None]
  - REFUSAL OF TREATMENT BY PATIENT [None]
  - SOCIAL AVOIDANT BEHAVIOUR [None]
